FAERS Safety Report 4383062-X (Version None)
Quarter: 2004Q2

REPORT INFORMATION
  Report Type: 
  Country: None (occurrence: None)
  Receive Date: 20040610
  Receipt Date: 20040413
  Transmission Date: 20050107
  Serious: No
  Sender: FDA-Public Use
  Company Number: US-JNJFOC-20040402569

PATIENT
  Age: 83 Year
  Sex: Female

DRUGS (13)
  1. NATRECOR [Suspect]
     Indication: CARDIAC FAILURE CONGESTIVE
     Dosage: BOLUS ONCE WEEKLY BASIS SINCE OCT-2003 OR NOV-2003
  2. NATRECOR [Suspect]
     Dosage: 0.01 UG/KG/MIN, INTRAVENOUS
     Route: 042
  3. VASOTEC [Suspect]
     Indication: DRUG USE FOR UNKNOWN INDICATION
     Dosage: ^STARTED RECENTLY^
  4. DIGOXIN [Concomitant]
  5. DETROL [Concomitant]
  6. TRICOR [Concomitant]
  7. BETAPACE [Concomitant]
  8. K-DUR 10 [Concomitant]
  9. COUMADIN [Concomitant]
  10. NITRO-DUR [Concomitant]
  11. LASIX [Concomitant]
  12. ALDACTONE [Concomitant]
  13. ZAROXOLYN [Concomitant]

REACTIONS (2)
  - ALOPECIA [None]
  - HYPOTRICHOSIS [None]
